FAERS Safety Report 13997108 (Version 1)
Quarter: 2017Q3

REPORT INFORMATION
  Report Type: Spontaneous
  Country: IT (occurrence: IT)
  Receive Date: 20170921
  Receipt Date: 20170921
  Transmission Date: 20171128
  Serious: Yes (Other)
  Sender: FDA-Public Use
  Company Number: IT-009507513-1708ITA010423

PATIENT
  Age: 61 Year
  Sex: Female

DRUGS (3)
  1. REXTAT [Suspect]
     Active Substance: LOVASTATIN
     Indication: TYPE IIA HYPERLIPIDAEMIA
     Dosage: 40 MG, DAILY
     Dates: start: 20140430, end: 20150907
  2. VYTORIN [Suspect]
     Active Substance: EZETIMIBE\SIMVASTATIN
     Indication: TYPE IIA HYPERLIPIDAEMIA
     Dosage: 20 MG DAILY
     Route: 048
     Dates: start: 20151222, end: 20160107
  3. PROVISACOR [Suspect]
     Active Substance: ROSUVASTATIN
     Indication: TYPE IIA HYPERLIPIDAEMIA
     Dosage: 20 MG, DAILY
     Route: 048
     Dates: start: 20131115, end: 20140320

REACTIONS (5)
  - Aspartate aminotransferase increased [None]
  - Gait disturbance [Recovering/Resolving]
  - Gamma-glutamyltransferase increased [None]
  - Myalgia [Recovering/Resolving]
  - Alanine aminotransferase increased [None]

NARRATIVE: CASE EVENT DATE: 20160107
